FAERS Safety Report 5618288-8 (Version None)
Quarter: 2008Q1

REPORT INFORMATION
  Report Type: 
  Country: None (occurrence: None)
  Receive Date: 20080207
  Receipt Date: 20080130
  Transmission Date: 20080703
  Serious: Yes (Other)
  Sender: FDA-Public Use
  Company Number: US-BAYER-200812523NA

PATIENT
  Age: 45 Year
  Sex: Male

DRUGS (2)
  1. ULTRAVIST (PHARMACY BULK) [Suspect]
     Indication: COMPUTERISED TOMOGRAM
     Route: 042
     Dates: start: 20071108, end: 20071108
  2. CONTRAST MEDIA [Concomitant]
     Indication: COMPUTERISED TOMOGRAM
     Route: 048
     Dates: start: 20071101, end: 20071101

REACTIONS (3)
  - ERYTHEMA [None]
  - HEART RATE INCREASED [None]
  - SNEEZING [None]
